FAERS Safety Report 7734960-8 (Version None)
Quarter: 2011Q3

REPORT INFORMATION
  Report Type: 
  Country: None (occurrence: None)
  Receive Date: 20110907
  Receipt Date: 20110830
  Transmission Date: 20111222
  Serious: Yes (Other)
  Sender: FDA-Public Use
  Company Number: PHHY2011GB79089

PATIENT
  Age: 45 Year
  Sex: Female

DRUGS (1)
  1. CETIRIZINE HCL [Suspect]
     Indication: SEASONAL ALLERGY
     Dosage: 02 CETIRIZINE TABLETS OVER A WEEK

REACTIONS (2)
  - DEPRESSION [None]
  - SUICIDAL IDEATION [None]
